FAERS Safety Report 7222464-0 (Version None)
Quarter: 2010Q4

REPORT INFORMATION
  Report Type: 
  Country: None (occurrence: None)
  Receive Date: 20101227
  Receipt Date: 20101217
  Transmission Date: 20110411
  Serious: Yes (Other)
  Sender: FDA-Public Use
  Company Number: CA-145099

PATIENT
  Sex: Female

DRUGS (6)
  1. WINRHO [Suspect]
     Indication: PROPHYLAXIS AGAINST RH ISOIMMUNISATION
     Dosage: 300 ?G  TOTAL), (300 ?G  )
     Dates: start: 20021220, end: 20021220
  2. WINRHO [Suspect]
     Indication: PROPHYLAXIS AGAINST RH ISOIMMUNISATION
     Dosage: 300 ?G  TOTAL), (300 ?G  )
     Dates: start: 20051021, end: 20051021
  3. WINRHO [Suspect]
     Indication: PROPHYLAXIS AGAINST RH ISOIMMUNISATION
     Dosage: 300 ?G  TOTAL), (300 ?G  )
     Dates: start: 20051226, end: 20051226
  4. WINRHO [Suspect]
  5. WINRHO [Suspect]
  6. FERROUS SULFATE TAB [Concomitant]

REACTIONS (1)
  - HEPATITIS C VIRUS TEST POSITIVE [None]
